FAERS Safety Report 16251502 (Version 1)
Quarter: 2019Q2

REPORT INFORMATION
  Report Type: Spontaneous
  Country: US (occurrence: US)
  Receive Date: 20190427
  Receipt Date: 20190427
  Transmission Date: 20190711
  Serious: Yes (Life-Threatening, Hospitalization)
  Sender: FDA-Public Use
  Company Number: None

PATIENT
  Age: 39 Year
  Sex: Female
  Weight: 60.75 kg

DRUGS (1)
  1. KYBELLA [Suspect]
     Active Substance: DEOXYCHOLIC ACID
     Indication: FAT TISSUE INCREASED
     Route: 058
     Dates: start: 20190329

REACTIONS (6)
  - Skin burning sensation [None]
  - Dizziness [None]
  - Skin exfoliation [None]
  - Skin lesion [None]
  - Skin laceration [None]
  - Skin erosion [None]

NARRATIVE: CASE EVENT DATE: 20190426
